FAERS Safety Report 9013784 (Version 1)
Quarter: 2013Q1

REPORT INFORMATION
  Report Type: Report from Study
  Country: CA (occurrence: CA)
  Receive Date: 20130115
  Receipt Date: 20130115
  Transmission Date: 20140127
  Serious: Yes (Hospitalization, Other)
  Sender: FDA-Public Use
  Company Number: CA-JNJFOC-20121011071

PATIENT
  Age: 54 Year
  Sex: Male
  Weight: 76.2 kg

DRUGS (4)
  1. REMICADE [Suspect]
     Indication: CROHN^S DISEASE
     Route: 042
  2. REMICADE [Suspect]
     Indication: CROHN^S DISEASE
     Route: 042
     Dates: start: 201004
  3. IMURAN [Concomitant]
     Route: 065
  4. VITAMIN A AND D IN COMBINATION [Concomitant]
     Route: 065

REACTIONS (3)
  - Fistula [Recovered/Resolved]
  - Intestinal obstruction [Recovering/Resolving]
  - Weight decreased [Unknown]
